FAERS Safety Report 21701446 (Version 1)
Quarter: 2022Q4

REPORT INFORMATION
  Report Type: Spontaneous
  Country: ZA (occurrence: ZA)
  Receive Date: 20221208
  Receipt Date: 20221208
  Transmission Date: 20230112
  Serious: Yes (Other)
  Sender: FDA-Public Use
  Company Number: ZA-002147023-NVSC2022ZA282936

PATIENT
  Age: 63 Year
  Sex: Male

DRUGS (2)
  1. TRAMETINIB [Suspect]
     Active Substance: TRAMETINIB
     Indication: Malignant melanoma stage III
     Dosage: UNK
     Route: 065
     Dates: start: 20221114
  2. DABRAFENIB [Suspect]
     Active Substance: DABRAFENIB
     Indication: Malignant melanoma stage III
     Dosage: UNK
     Route: 065
     Dates: start: 20221114

REACTIONS (11)
  - Delirium [Unknown]
  - Altered state of consciousness [Unknown]
  - Anal incontinence [Not Recovered/Not Resolved]
  - Gait disturbance [Unknown]
  - Tremor [Unknown]
  - Illness [Unknown]
  - Body temperature increased [Recovered/Resolved]
  - Immune system disorder [Unknown]
  - Skin discolouration [Unknown]
  - Dizziness [Unknown]
  - Nausea [Unknown]

NARRATIVE: CASE EVENT DATE: 20221128
